FAERS Safety Report 4652732-8 (Version None)
Quarter: 2005Q2

REPORT INFORMATION
  Report Type: 
  Country: None (occurrence: None)
  Receive Date: 20050502
  Receipt Date: 20050419
  Transmission Date: 20051028
  Serious: Yes (Life-Threatening, Hospitalization)
  Sender: FDA-Public Use
  Company Number: 2005UW05644

PATIENT
  Age: 43 Year
  Sex: Female
  Weight: 82.5547 kg

DRUGS (6)
  1. LITHIUM [Suspect]
     Indication: BIPOLAR I DISORDER
     Dosage: 600 MG DAILY PO
     Route: 048
     Dates: start: 20040722, end: 20050410
  2. TYLENOL (CAPLET) [Suspect]
     Indication: HEADACHE
     Dosage: 2500 MG DAILY PO
     Route: 048
     Dates: start: 20041201
  3. TYLENOL [Suspect]
     Indication: HEADACHE
     Dosage: 1500 MG HS PO
     Route: 048
     Dates: start: 20050201
  4. ASPIRIN [Suspect]
     Indication: HEADACHE
     Dosage: 975 MG DAILY PO
     Route: 048
     Dates: start: 20041201
  5. ALEVE [Suspect]
     Indication: HEADACHE
     Dosage: 1200 MG DAILY PO
     Route: 048
     Dates: start: 20050201
  6. PLACEBO [Suspect]
     Indication: BIPOLAR I DISORDER
     Dosage: 400 MG DAILY PO
     Route: 048
     Dates: start: 20041123, end: 20050403

REACTIONS (5)
  - AORTIC STENOSIS [None]
  - ATRIOVENTRICULAR BLOCK COMPLETE [None]
  - BRADYCARDIA [None]
  - DRUG INTERACTION [None]
  - MITRAL VALVE INCOMPETENCE [None]
